FAERS Safety Report 7399170-5 (Version None)
Quarter: 2011Q1

REPORT INFORMATION
  Report Type: 
  Country: None (occurrence: None)
  Receive Date: 20110328
  Receipt Date: 20110314
  Transmission Date: 20110831
  Serious: Yes (Hospitalization)
  Sender: FDA-Public Use
  Company Number: 2011MA002595

PATIENT
  Age: 86 Year
  Sex: Female

DRUGS (8)
  1. ATORVASTATIN [Concomitant]
  2. PARACETAMOL [Concomitant]
  3. CO-AMILOFRUSE (FRUMIL) [Suspect]
     Indication: MYOCARDIAL ISCHAEMIA
     Dosage: QD;PO
     Route: 048
     Dates: end: 20110302
  4. ACID [Concomitant]
  5. ATENOLOL [Concomitant]
  6. OMEPRAZOLE [Concomitant]
  7. RAMIPRIL [Suspect]
     Indication: HYPERTENSION
     Dosage: 5 MG;QD
     Dates: end: 20110228
  8. ASPIRIN [Concomitant]

REACTIONS (3)
  - FALL [None]
  - BLOOD PRESSURE SYSTOLIC DECREASED [None]
  - HEAD INJURY [None]
